FAERS Safety Report 5704028-0 (Version None)
Quarter: 2008Q2

REPORT INFORMATION
  Report Type: 
  Country: None (occurrence: None)
  Receive Date: 20080414
  Receipt Date: 20080403
  Transmission Date: 20081010
  Serious: Yes (Other)
  Sender: FDA-Public Use
  Company Number: HQWYE567311JUN07

PATIENT
  Sex: Female

DRUGS (7)
  1. PREMPRO [Suspect]
  2. CYCRIN [Suspect]
  3. ESTRATEST [Suspect]
  4. ESTRACE [Suspect]
  5. ESTRADIOL [Suspect]
  6. PREMARIN [Suspect]
  7. MPA [Suspect]

REACTIONS (1)
  - BREAST CANCER METASTATIC [None]
